FAERS Safety Report 25369871 (Version 1)
Quarter: 2025Q2

REPORT INFORMATION
  Report Type: Spontaneous
  Country: IT (occurrence: IT)
  Receive Date: 20250528
  Receipt Date: 20250528
  Transmission Date: 20250716
  Serious: Yes (Hospitalization)
  Sender: MYLAN
  Company Number: None

PATIENT
  Age: 88 Year
  Sex: Female

DRUGS (8)
  1. XANAX [Interacting]
     Active Substance: ALPRAZOLAM
     Indication: Agitation
     Dosage: 30 GTT DROPS, QD,10 DROPS 8 A.M. - 3.30 P.M. - 9.30 P.M
     Dates: start: 2024, end: 20250510
  2. ACETAMINOPHEN\OXYCODONE HYDROCHLORIDE [Interacting]
     Active Substance: ACETAMINOPHEN\OXYCODONE HYDROCHLORIDE
     Indication: Back pain
  3. PALEXIA [Interacting]
     Active Substance: TAPENTADOL HYDROCHLORIDE
     Indication: Back pain
     Dosage: 100 MILLIGRAM, QD, 50 MG 8 AM-09:30 PM
     Dates: start: 2025, end: 20250510
  4. NEURONTIN [Interacting]
     Active Substance: GABAPENTIN
     Indication: Back pain
     Dosage: 300 MILLIGRAM, QD,  100 MG 8 A.M. - 3.30 P.M. - 9.30 P.M
     Dates: start: 2024, end: 20250510
  5. AMLODIPINE\INDAPAMIDE\PERINDOPRIL [Concomitant]
     Active Substance: AMLODIPINE\INDAPAMIDE\PERINDOPRIL
     Indication: Hypertension
     Dosage: 1 TABLET, QD 8 AM
  6. ZOLOFT [Concomitant]
     Active Substance: SERTRALINE HYDROCHLORIDE
     Indication: Depression
     Dosage: 50 MILLIGRAM, QD
  7. LEVACECARNINE HYDROCHLORIDE [Concomitant]
     Active Substance: LEVACECARNINE HYDROCHLORIDE
     Indication: Back pain
     Dosage: 500 MILLIGRAM, QD AT 3.30 PM
  8. AMITRIPTYLINE HYDROCHLORIDE [Concomitant]
     Active Substance: AMITRIPTYLINE HYDROCHLORIDE
     Indication: Depression
     Dosage: 15 GTT DROPS, QD,15 DROPS 9.30 P.M

REACTIONS (2)
  - Sopor [Recovering/Resolving]
  - Drug interaction [Recovered/Resolved]

NARRATIVE: CASE EVENT DATE: 20240101
